FAERS Safety Report 10101610 (Version 1)
Quarter: 2014Q2

REPORT INFORMATION
  Report Type: Spontaneous
  Country: IT (occurrence: None)
  Receive Date: 20140422
  Receipt Date: 20140422
  Transmission Date: 20141212
  Serious: Yes (Hospitalization)
  Sender: FDA-Public Use
  Company Number: 2014P1003188

PATIENT
  Age: 12 Year
  Sex: Female
  Weight: 38.9 kg

DRUGS (1)
  1. RISPERIDONE [Suspect]
     Indication: BIPOLAR I DISORDER
     Route: 048

REACTIONS (2)
  - Hypertension [None]
  - Posterior reversible encephalopathy syndrome [None]
